FAERS Safety Report 9381094 (Version 2)
Quarter: 2013Q3

REPORT INFORMATION
  Report Type: Spontaneous
  Country: US (occurrence: US)
  Receive Date: 20130703
  Receipt Date: 20130712
  Transmission Date: 20140515
  Serious: No
  Sender: FDA-Public Use
  Company Number: US-BIOGENIDEC-2013BI058984

PATIENT
  Sex: Female

DRUGS (1)
  1. TYSABRI [Suspect]
     Indication: MULTIPLE SCLEROSIS
     Route: 042
     Dates: start: 20090528

REACTIONS (4)
  - Muscular weakness [Not Recovered/Not Resolved]
  - Loss of control of legs [Unknown]
  - Multiple sclerosis relapse [Not Recovered/Not Resolved]
  - Asthenia [Unknown]
